FAERS Safety Report 18264495 (Version 1)
Quarter: 2020Q3

REPORT INFORMATION
  Report Type: Spontaneous
  Country: JP (occurrence: JP)
  Receive Date: 20200914
  Receipt Date: 20200914
  Transmission Date: 20201103
  Serious: Yes (Death)
  Sender: FDA-Public Use
  Company Number: JP-FRESENIUS KABI-FK202009361

PATIENT

DRUGS (2)
  1. MONTEPLASE [Suspect]
     Active Substance: MONTEPLASE
     Indication: PULMONARY EMBOLISM
     Dosage: 27000 UNITS/KG
     Route: 064
  2. HEPARIN (MANUFACTURER UNKNOWN) [Suspect]
     Active Substance: HEPARIN SODIUM
     Indication: ANTICOAGULANT THERAPY
     Dosage: UNKNOWN
     Route: 064

REACTIONS (2)
  - Cardiac arrest [Fatal]
  - Foetal exposure during pregnancy [Fatal]
